FAERS Safety Report 4342714-8 (Version None)
Quarter: 2004Q1

REPORT INFORMATION
  Report Type: 
  Country: None (occurrence: None)
  Receive Date: 20040213
  Receipt Date: 20031023
  Transmission Date: 20041129
  Serious: Yes (Other)
  Sender: FDA-Public Use
  Company Number: 350022

PATIENT
  Age: 63 Year
  Sex: Male

DRUGS (2)
  1. PEGASYS [Suspect]
     Dosage: SUBCUTANEOUS
     Route: 058
     Dates: start: 20030915
  2. COPEGUS [Suspect]
     Dosage: ORAL
     Route: 048
     Dates: start: 20030915

REACTIONS (13)
  - ANOREXIA [None]
  - CHILLS [None]
  - DIARRHOEA [None]
  - DRY MOUTH [None]
  - DYSPNOEA [None]
  - HAEMOGLOBIN DECREASED [None]
  - HEADACHE [None]
  - INSOMNIA [None]
  - NAUSEA [None]
  - PLATELET COUNT DECREASED [None]
  - PRURITUS [None]
  - PYREXIA [None]
  - WHITE BLOOD CELL COUNT DECREASED [None]
